FAERS Safety Report 4830111-8 (Version None)
Quarter: 2005Q4

REPORT INFORMATION
  Report Type: 
  Country: None (occurrence: None)
  Receive Date: 20051115
  Receipt Date: 20051115
  Transmission Date: 20060501
  Serious: Yes (Death, Hospitalization)
  Sender: FDA-Public Use
  Company Number: None

PATIENT
  Sex: Female
  Weight: 44.9 kg

DRUGS (11)
  1. CYTARABINE [Suspect]
     Indication: ACUTE LYMPHOCYTIC LEUKAEMIA
     Dosage: SEE IMAGE
     Route: 037
     Dates: start: 20050506, end: 20050506
  2. CYTARABINE [Suspect]
     Indication: ACUTE LYMPHOCYTIC LEUKAEMIA
     Dosage: SEE IMAGE
     Route: 037
     Dates: start: 20050523
  3. DAUNORUBICIN [Suspect]
     Dosage: SEE IMAGE
     Dates: start: 20050506, end: 20050520
  4. DEXAMETHASONE [Suspect]
     Dosage: SEE IMAGE
     Dates: start: 20050506, end: 20050519
  5. METHOTREXATE [Suspect]
     Dosage: SEE IMAGE
     Dates: start: 20050513, end: 20050513
  6. PEG-L-ASPARAGINASE [Suspect]
     Dosage: SEE IMAGE
     Dates: start: 20050509, end: 20050509
  7. BACTRIM [Concomitant]
  8. INSULIN [Concomitant]
  9. LANOXIN [Concomitant]
  10. LASIX [Concomitant]
  11. SINGULAIR [Concomitant]

REACTIONS (8)
  - BLOOD GLUCOSE INCREASED [None]
  - CARDIO-RESPIRATORY ARREST [None]
  - HYPOGLYCAEMIA [None]
  - HYPOXIA [None]
  - LOSS OF CONSCIOUSNESS [None]
  - MULTI-ORGAN FAILURE [None]
  - POOR PERIPHERAL CIRCULATION [None]
  - VOMITING [None]
